FAERS Safety Report 5397902-9 (Version None)
Quarter: 2007Q3

REPORT INFORMATION
  Report Type: 
  Country: None (occurrence: None)
  Receive Date: 20070723
  Receipt Date: 20070723
  Transmission Date: 20080115
  Serious: Yes (Other)
  Sender: FDA-Public Use
  Company Number: None

PATIENT
  Age: 61 Year
  Sex: Female
  Weight: 65.7716 kg

DRUGS (2)
  1. PROAIR HFA [Suspect]
     Indication: ASTHMA
     Dosage: 2 PUFFS 4 TIMES A DAY INHAL
     Route: 055
     Dates: start: 20070710, end: 20070722
  2. FLOVENT HFA [Suspect]
     Indication: BRONCHITIS
     Dosage: 2 PUFFS 2 TIMES A DAY INHAL
     Route: 055
     Dates: start: 20070710, end: 20070722

REACTIONS (5)
  - BRONCHITIS [None]
  - DRUG EFFECT DECREASED [None]
  - PHARMACEUTICAL PRODUCT COMPLAINT [None]
  - WHEEZING [None]
  - WRONG TECHNIQUE IN DRUG USAGE PROCESS [None]
